FAERS Safety Report 18021012 (Version 2)
Quarter: 2020Q3

REPORT INFORMATION
  Report Type: Spontaneous
  Country: GB (occurrence: GB)
  Receive Date: 20200714
  Receipt Date: 20200722
  Transmission Date: 20201103
  Serious: Yes (Hospitalization, Other)
  Sender: FDA-Public Use
  Company Number: GB-MYLANLABS-2020M1064618

PATIENT
  Age: 34 Year
  Sex: Male
  Weight: 116.8 kg

DRUGS (12)
  1. PREDNISOLONE. [Concomitant]
     Active Substance: PREDNISOLONE
     Dosage: 15 MILLIGRAM, QD
     Route: 048
     Dates: start: 2020
  2. LANSOPRAZOLE. [Concomitant]
     Active Substance: LANSOPRAZOLE
     Indication: PRODUCT USED FOR UNKNOWN INDICATION
     Dosage: 30 MILLIGRAM, QD (TO BE USED WITH PREDNISOLONE)
     Route: 048
     Dates: start: 20200612
  3. CLOBETASOL PROPRIONATE [Concomitant]
     Active Substance: CLOBETASOL PROPIONATE
     Indication: VASCULITIC RASH
     Dosage: APPLY TWICE DAILY
     Route: 061
     Dates: start: 20200612
  4. RISPERIDONE. [Concomitant]
     Active Substance: RISPERIDONE
     Indication: SCHIZOAFFECTIVE DISORDER
     Dosage: 4 MILLIGRAM, BID
     Route: 048
     Dates: start: 20200615, end: 20200619
  5. PROCYCLIDINE [Concomitant]
     Active Substance: PROCYCLIDINE
     Indication: EXTRAPYRAMIDAL DISORDER
     Dosage: 5 MILLIGRAM, QD
     Route: 048
     Dates: start: 20200615, end: 20200624
  6. ZUCLOPENTHIXOL DECANOATE [Concomitant]
     Active Substance: ZUCLOPENTHIXOL DECANOATE
     Indication: SCHIZOAFFECTIVE DISORDER
     Dosage: 300 MILLIGRAM, STAT
     Route: 030
     Dates: start: 20200603, end: 20200603
  7. PREDNISOLONE. [Concomitant]
     Active Substance: PREDNISOLONE
     Indication: VASCULITIC RASH
     Dosage: 30 MILLIGRAM
     Route: 048
     Dates: start: 20200612
  8. FLUCLOXACILLIN [Concomitant]
     Active Substance: FLUCLOXACILLIN
     Indication: VASCULITIC RASH
     Dosage: 1 GRAM, QID
     Route: 048
     Dates: start: 20200611, end: 20200618
  9. CLOZARIL [Suspect]
     Active Substance: CLOZAPINE
     Indication: SCHIZOPHRENIA
     Dosage: 100 MG OD, 200 MG ON
     Route: 048
     Dates: start: 20200619, end: 20200705
  10. CHLORPHENAMINE [Concomitant]
     Active Substance: CHLORPHENIRAMINE MALEATE
     Indication: VASCULITIC RASH
     Dosage: 4 MILLIGRAM, TID
     Route: 048
     Dates: start: 20200612
  11. CLOZARIL [Suspect]
     Active Substance: CLOZAPINE
     Indication: SCHIZOAFFECTIVE DISORDER
  12. PREDNISOLONE. [Concomitant]
     Active Substance: PREDNISOLONE
     Dosage: 20 MILLIGRAM, QD
     Route: 048
     Dates: start: 2020

REACTIONS (11)
  - General physical health deterioration [Unknown]
  - Infection [Recovering/Resolving]
  - Alanine aminotransferase increased [Not Recovered/Not Resolved]
  - Tremor [Unknown]
  - C-reactive protein increased [Recovering/Resolving]
  - Lethargy [Unknown]
  - Fibrin D dimer increased [Recovering/Resolving]
  - Cardiomyopathy [Recovering/Resolving]
  - Respiratory tract infection [Unknown]
  - Red blood cell sedimentation rate increased [Not Recovered/Not Resolved]
  - Troponin I increased [Recovering/Resolving]

NARRATIVE: CASE EVENT DATE: 2020
